FAERS Safety Report 7420746-0 (Version None)
Quarter: 2011Q2

REPORT INFORMATION
  Report Type: 
  Country: None (occurrence: None)
  Receive Date: 20110418
  Receipt Date: 20110406
  Transmission Date: 20111010
  Serious: Yes (Other)
  Sender: FDA-Public Use
  Company Number: DE-BRISTOL-MYERS SQUIBB COMPANY-15657976

PATIENT
  Age: 77 Year
  Sex: Male
  Weight: 100 kg

DRUGS (1)
  1. ONGLYZA [Suspect]
     Dosage: INTERRUPTED ON 16OCT10.RESTARTED ON 12JAN11,STOPPD ON 9FEB11,THEN RESTARTED
     Dates: start: 20101006

REACTIONS (1)
  - GOUT [None]
